FAERS Safety Report 12641748 (Version 1)
Quarter: 2016Q3

REPORT INFORMATION
  Report Type: Spontaneous
  Country: JP (occurrence: JP)
  Receive Date: 20160810
  Receipt Date: 20160810
  Transmission Date: 20161109
  Serious: Yes (Other)
  Sender: FDA-Public Use
  Company Number: JP-GILEAD-2016-0226458

PATIENT
  Age: 67 Year
  Sex: Male

DRUGS (13)
  1. METGLUCO [Concomitant]
     Active Substance: METFORMIN HYDROCHLORIDE
  2. REBETOL [Concomitant]
     Active Substance: RIBAVIRIN
     Dosage: 800 MG, UNK
     Dates: start: 20160418, end: 20160711
  3. PLAVIX [Concomitant]
     Active Substance: CLOPIDOGREL BISULFATE
     Indication: CEREBRAL INFARCTION
  4. BASEN                              /01290601/ [Concomitant]
     Active Substance: VOGLIBOSE
  5. EUGLUCON [Concomitant]
     Active Substance: GLYBURIDE
  6. FUROSEMIDE. [Concomitant]
     Active Substance: FUROSEMIDE
  7. NITROL                             /00003201/ [Concomitant]
  8. SOVALDI [Suspect]
     Active Substance: SOFOSBUVIR
     Indication: HEPATITIS C
     Dosage: UNK
     Route: 065
     Dates: start: 20160418, end: 20160711
  9. DIGOXIN. [Concomitant]
     Active Substance: DIGOXIN
  10. TRAZENTA [Concomitant]
     Active Substance: LINAGLIPTIN
  11. CARVEDILOL. [Concomitant]
     Active Substance: CARVEDILOL
  12. ADALAT [Concomitant]
     Active Substance: NIFEDIPINE
  13. ZYLORIC [Concomitant]
     Active Substance: ALLOPURINOL

REACTIONS (1)
  - Cerebral infarction [Unknown]

NARRATIVE: CASE EVENT DATE: 20160618
